FAERS Safety Report 24749750 (Version 1)
Quarter: 2024Q4

REPORT INFORMATION
  Report Type: Report from Study
  Country: IN (occurrence: IN)
  Receive Date: 20241218
  Receipt Date: 20241218
  Transmission Date: 20250115
  Serious: Yes (Death)
  Sender: EISAI
  Company Number: IN-Eisai-EC-2024-180767

PATIENT
  Age: 54 Year
  Sex: Female

DRUGS (1)
  1. ERIBULIN [Suspect]
     Active Substance: ERIBULIN
     Indication: Breast cancer
     Dosage: ADMINISTERED ON DAYS 1 AND 8 OF A 21 DAY CYCLE
     Route: 042
     Dates: start: 20240911, end: 20240911

REACTIONS (1)
  - Platelet count decreased [Fatal]

NARRATIVE: CASE EVENT DATE: 20240901
